FAERS Safety Report 17470940 (Version 1)
Quarter: 2020Q1

REPORT INFORMATION
  Report Type: Spontaneous
  Country: US (occurrence: US)
  Receive Date: 20200227
  Receipt Date: 20200227
  Transmission Date: 20200409
  Serious: No
  Sender: FDA-Public Use
  Company Number: US-ASTRAZENECA-2020SE19339

PATIENT
  Sex: Male
  Weight: 158.8 kg

DRUGS (4)
  1. NARCO [Concomitant]
     Dosage: 5/325 DAILY
  2. ELIQUIS [Concomitant]
     Active Substance: APIXABAN
     Indication: ATRIAL FIBRILLATION
     Route: 048
  3. BRILINTA [Suspect]
     Active Substance: TICAGRELOR
     Indication: STENT PLACEMENT
     Route: 048
     Dates: start: 20200129
  4. NARCO [Concomitant]
     Dosage: 10/325

REACTIONS (2)
  - Haemorrhage [Not Recovered/Not Resolved]
  - Product prescribing issue [Not Recovered/Not Resolved]
